FAERS Safety Report 4350387-3 (Version None)
Quarter: 2004Q2

REPORT INFORMATION
  Report Type: 
  Country: None (occurrence: None)
  Receive Date: 20040427
  Receipt Date: 20040413
  Transmission Date: 20050107
  Serious: Yes (Death)
  Sender: FDA-Public Use
  Company Number: 163-20785-04030785

PATIENT
  Age: 79 Year
  Sex: Female

DRUGS (1)
  1. THALOMID [Suspect]
     Indication: MULTIPLE MYELOMA
     Dosage: 100-200 MG INTERMITTENTLY
     Dates: start: 20030403, end: 20031209

REACTIONS (7)
  - DIALYSIS [None]
  - FALL [None]
  - HAEMORRHAGE INTRACRANIAL [None]
  - HIP FRACTURE [None]
  - INTERNATIONAL NORMALISED RATIO INCREASED [None]
  - RENAL FAILURE CHRONIC [None]
  - SEPSIS [None]
